FAERS Safety Report 5652714-3 (Version None)
Quarter: 2008Q1

REPORT INFORMATION
  Report Type: 
  Country: None (occurrence: None)
  Receive Date: 20080131
  Receipt Date: 20071005
  Transmission Date: 20080703
  Serious: No
  Sender: FDA-Public Use
  Company Number: US200710001871

PATIENT
  Age: 69 Year
  Sex: Male
  Weight: 132.4 kg

DRUGS (16)
  1. BYETTA [Suspect]
     Indication: TYPE 2 DIABETES MELLITUS
     Dosage: 5 UG,2/D,SUBCUTANEOUS; 25 UG,OTHER,SUBCUTANEOUS
     Route: 058
     Dates: start: 20070201, end: 20070301
  2. EXENATIDE PEN [Concomitant]
  3. DISPOSABLE DEVICE (EXENATIDE PEN) [Concomitant]
  4. INSULIN [Concomitant]
  5. TRICOR [Concomitant]
  6. ZOCOR [Concomitant]
  7. TOPROL-XL [Concomitant]
  8. ASPIRIN [Concomitant]
  9. DYNACIRC [Concomitant]
  10. HYDRALAZINE HCL [Concomitant]
  11. BUMEX [Concomitant]
  12. ISOSORBIDE MONONITRATE [Concomitant]
  13. TRUSOPT [Concomitant]
  14. ALPHAGAN [Concomitant]
  15. TIMOLOL MALEATE [Concomitant]
  16. XALATAN [Concomitant]

REACTIONS (3)
  - DYSGEUSIA [None]
  - OVERDOSE [None]
  - WEIGHT DECREASED [None]
